FAERS Safety Report 6825875-8 (Version None)
Quarter: 2010Q3

REPORT INFORMATION
  Report Type: 
  Country: None (occurrence: None)
  Receive Date: 20100707
  Receipt Date: 20100707
  Transmission Date: 20110219
  Serious: Yes (Hospitalization)
  Sender: FDA-Public Use
  Company Number: None

PATIENT
  Age: 63 Year
  Sex: Female
  Weight: 46.7205 kg

DRUGS (4)
  1. LIALDA [Suspect]
     Indication: COLITIS ULCERATIVE
     Dosage: 4 PER DAY ORAL
     Route: 048
     Dates: start: 20100317, end: 20100409
  2. IMURAN [Suspect]
     Indication: COLITIS ULCERATIVE
     Dosage: 1 PER DAY ORAL
     Route: 048
     Dates: start: 20100506, end: 20100524
  3. IMURAN [Suspect]
     Indication: COLITIS ULCERATIVE
     Dosage: 1 PER DAY ORAL
     Route: 048
     Dates: start: 20100610
  4. IMURAN [Suspect]
     Indication: COLITIS ULCERATIVE
     Dosage: 1 PER DAY ORAL
     Route: 048
     Dates: start: 20100614

REACTIONS (5)
  - DIARRHOEA [None]
  - DRUG HYPERSENSITIVITY [None]
  - SWELLING FACE [None]
  - SWOLLEN TONGUE [None]
  - VOMITING [None]
